FAERS Safety Report 25800451 (Version 1)
Quarter: 2025Q3

REPORT INFORMATION
  Report Type: Other
  Country: GB (occurrence: GB)
  Receive Date: 20250915
  Receipt Date: 20250915
  Transmission Date: 20251021
  Serious: Yes (Other)
  Sender: ASPEN
  Company Number: GB-STEMLINE THERAPEUTICS, INC-2025-STML-GB003090

PATIENT

DRUGS (6)
  1. DEXAMETHASONE [Suspect]
     Active Substance: DEXAMETHASONE
     Indication: Plasma cell myeloma
     Route: 065
  2. DEXAMETHASONE [Suspect]
     Active Substance: DEXAMETHASONE
     Route: 065
  3. SELINEXOR [Suspect]
     Active Substance: SELINEXOR
     Indication: Plasma cell myeloma
     Dosage: 100 MG, 1/WEEK
     Route: 048
     Dates: start: 20241204
  4. SELINEXOR [Suspect]
     Active Substance: SELINEXOR
     Route: 048
  5. VELCADE [Suspect]
     Active Substance: BORTEZOMIB
     Indication: Plasma cell myeloma
     Route: 065
  6. VELCADE [Suspect]
     Active Substance: BORTEZOMIB
     Route: 065

REACTIONS (1)
  - Neutropenia [Recovered/Resolved]
